FAERS Safety Report 19243571 (Version 1)
Quarter: 2021Q2

REPORT INFORMATION
  Report Type: Spontaneous
  Country: US (occurrence: US)
  Receive Date: 20210511
  Receipt Date: 20210511
  Transmission Date: 20210717
  Serious: No
  Sender: FDA-Public Use
  Company Number: US-ASTRAZENECA-2021A344493

PATIENT
  Sex: Female
  Weight: 120.2 kg

DRUGS (1)
  1. PULMICORT FLEXHALER [Suspect]
     Active Substance: BUDESONIDE
     Indication: ASTHMA
     Dosage: 180UG/INHAL TWO TIMES A DAY
     Route: 055

REACTIONS (4)
  - Device malfunction [Unknown]
  - Asthma [Unknown]
  - Inflammation [Unknown]
  - Device mechanical issue [Unknown]
